FAERS Safety Report 8470581-X (Version None)
Quarter: 2012Q2

REPORT INFORMATION
  Report Type: 
  Country: None (occurrence: None)
  Receive Date: 20120627
  Receipt Date: 20120623
  Transmission Date: 20120825
  Serious: Yes (Hospitalization)
  Sender: FDA-Public Use
  Company Number: PHEH2012US012551

PATIENT
  Sex: Male

DRUGS (22)
  1. EXJADE [Suspect]
     Indication: IRON OVERLOAD
     Dosage: 1500 MG, ONCE DAILY
     Route: 048
     Dates: start: 20120601, end: 20120610
  2. PRAZOSIN [Concomitant]
  3. GLIPIZIDE [Concomitant]
  4. LIPITOR [Concomitant]
  5. HUMALOG [Concomitant]
  6. VENTOLIN [Concomitant]
  7. ATENOLOL [Concomitant]
  8. ASPIRIN [Concomitant]
  9. CALCIUM [Concomitant]
  10. POTASSIUM ACETATE [Concomitant]
  11. NITROGLYCERIN [Concomitant]
  12. ASMANEX TWISTHALER [Concomitant]
  13. NIASPAN [Concomitant]
  14. SEREVENT [Concomitant]
  15. OMEPRAZOLE [Concomitant]
  16. LEVEMIR [Concomitant]
  17. TESTOSTERONE [Concomitant]
  18. FUROSEMIDE [Concomitant]
  19. GINSENG [Concomitant]
  20. BLOOD TRANSFUSION, AUXILIARY PRODUCTS [Concomitant]
     Dosage: UNK UKN, EVERY 7-10 DAYS
  21. ENALAPRIL MALEATE [Concomitant]
  22. ISORDIL [Concomitant]

REACTIONS (5)
  - DIZZINESS [None]
  - NAUSEA [None]
  - SPEECH DISORDER [None]
  - LOSS OF CONSCIOUSNESS [None]
  - DIARRHOEA [None]
